FAERS Safety Report 6142168-5 (Version None)
Quarter: 2009Q2

REPORT INFORMATION
  Report Type: 
  Country: None (occurrence: None)
  Receive Date: 20090402
  Receipt Date: 20090327
  Transmission Date: 20091009
  Serious: Yes (Other)
  Sender: FDA-Public Use
  Company Number: US-JNJCH-2009008696

PATIENT
  Age: 4 Year
  Sex: Female
  Weight: 15.9 kg

DRUGS (1)
  1. CHILDREN'S ZYRTEC ALLERGY SYRUP [Suspect]
     Indication: HYPERSENSITIVITY
     Dosage: TEXT:1/2 TEASPOONFUL
     Route: 048
     Dates: start: 20080101, end: 20090326

REACTIONS (1)
  - URINARY INCONTINENCE [None]
